FAERS Safety Report 25274494 (Version 1)
Quarter: 2025Q2

REPORT INFORMATION
  Report Type: Spontaneous
  Country: US (occurrence: None)
  Receive Date: 20250506
  Receipt Date: 20250506
  Transmission Date: 20250716
  Serious: Yes (Other)
  Sender: INCYTE
  Company Number: US-002147023-NVSC2025US067374

PATIENT
  Age: 17 Year

DRUGS (6)
  1. JAKAFI [Suspect]
     Active Substance: RUXOLITINIB
     Indication: Immune system disorder
     Dosage: 10 MG, BID
     Route: 065
  2. JAKAFI [Suspect]
     Active Substance: RUXOLITINIB
     Indication: Autoimmune disorder
  3. JAKAFI [Suspect]
     Active Substance: RUXOLITINIB
     Indication: Rectal ulcer
  4. JAKAFI [Suspect]
     Active Substance: RUXOLITINIB
     Indication: Mucocutaneous candidiasis
  5. CYCLOSPORINE [Concomitant]
     Active Substance: CYCLOSPORINE
     Indication: Product used for unknown indication
     Route: 065
  6. PREDNISONE [Concomitant]
     Active Substance: PREDNISONE
     Indication: Product used for unknown indication
     Route: 065

REACTIONS (2)
  - Drug effective for unapproved indication [Unknown]
  - Neutropenia [Unknown]
